FAERS Safety Report 17048057 (Version 1)
Quarter: 2019Q4

REPORT INFORMATION
  Report Type: Spontaneous
  Country: US (occurrence: US)
  Receive Date: 20191018
  Receipt Date: 20191018
  Transmission Date: 20200122
  Serious: Yes (Hospitalization)
  Sender: FDA-Public Use
  Company Number: None

PATIENT
  Age: 65 Year
  Sex: Male
  Weight: 74.8 kg

DRUGS (3)
  1. TAXOTERE [Suspect]
     Active Substance: DOCETAXEL
  2. TAXOTERE [Suspect]
     Active Substance: DOCETAXEL
  3. CARBOPLATIN. [Concomitant]
     Active Substance: CARBOPLATIN

REACTIONS (7)
  - Platelet count decreased [None]
  - Blood bilirubin increased [None]
  - Somnolence [None]
  - Aspartate aminotransferase increased [None]
  - Metastases to liver [None]
  - Hemiparesis [None]
  - Asthenia [None]

NARRATIVE: CASE EVENT DATE: 20190909
